FAERS Safety Report 6141211-7 (Version None)
Quarter: 2009Q2

REPORT INFORMATION
  Report Type: 
  Country: None (occurrence: None)
  Receive Date: 20090402
  Receipt Date: 20090331
  Transmission Date: 20091009
  Serious: Yes (Hospitalization)
  Sender: FDA-Public Use
  Company Number: TR-WYE-H08768009

PATIENT
  Sex: Female

DRUGS (17)
  1. SIROLIMUS [Suspect]
     Indication: PROPHYLAXIS AGAINST TRANSPLANT REJECTION
     Dosage: UNKNOWN
  2. MYCOPHENOLATE MOFETIL [Concomitant]
     Indication: PROPHYLAXIS AGAINST TRANSPLANT REJECTION
     Route: 048
     Dates: start: 20031021
  3. CYCLOSPORINE [Concomitant]
     Indication: PROPHYLAXIS AGAINST TRANSPLANT REJECTION
     Dosage: UNKNOWN DOSE BID
     Route: 048
     Dates: start: 20030626
  4. TACROLIMUS [Concomitant]
     Indication: PROPHYLAXIS AGAINST TRANSPLANT REJECTION
     Route: 048
     Dates: start: 20031020, end: 20040625
  5. ISONIAZID [Concomitant]
     Dosage: UNKNOWN
     Dates: start: 20040420, end: 20040909
  6. PREDNISOLONE [Concomitant]
     Indication: PROPHYLAXIS AGAINST TRANSPLANT REJECTION
     Route: 042
     Dates: start: 20031030
  7. ACYCLOVIR [Concomitant]
     Dosage: UNKNOWN
     Dates: start: 20031023, end: 20040420
  8. ETHAMBUTOL HCL [Concomitant]
     Dosage: UNKNOWN
     Dates: start: 20040420, end: 20040909
  9. FAMOTIDINE [Concomitant]
     Dosage: UNKNOWN
     Dates: start: 20031026
  10. LEVOFLOXACIN [Concomitant]
     Dosage: UNKNOWN
     Dates: start: 20040126, end: 20040205
  11. MYCOSTATIN [Concomitant]
     Dosage: UNKNOWN
     Dates: start: 20031024, end: 20040420
  12. PRAVASTATIN [Concomitant]
     Dosage: UNKNOWN
     Dates: start: 20031026
  13. PYRAZINAMIDE [Concomitant]
     Dosage: UNKNOWN
     Dates: start: 20040420, end: 20040909
  14. RIFAMPICIN [Concomitant]
     Dosage: UNKNOWN
     Dates: start: 20040420, end: 20040909
  15. SULFAMETHOXAZOLE AND TRIMETHOPRIM [Concomitant]
     Dosage: UNKNOWN
     Dates: start: 20031023, end: 20040420
  16. PREDNISOLONE [Concomitant]
     Route: 048
     Dates: start: 20031026, end: 20050303
  17. DACLIZUMAB [Concomitant]
     Indication: PROPHYLAXIS AGAINST TRANSPLANT REJECTION
     Route: 042
     Dates: start: 20031020

REACTIONS (2)
  - NEUROPATHY PERIPHERAL [None]
  - VESICOURETERIC REFLUX [None]
